FAERS Safety Report 5271029-9 (Version None)
Quarter: 2007Q1

REPORT INFORMATION
  Report Type: 
  Country: None (occurrence: None)
  Receive Date: 20061214
  Receipt Date: 20061004
  Transmission Date: 20070707
  Serious: Yes (Hospitalization, Disabling)
  Sender: FDA-Public Use
  Company Number: 2005082870

PATIENT
  Age: 60 Year
  Sex: Female
  Weight: 69.8539 kg

DRUGS (7)
  1. BEXTRA [Suspect]
     Indication: ARTHRITIS
     Dosage: 10 MG (10 MG, 1 IN 1 D), ORAL
     Route: 048
     Dates: start: 20030825, end: 20041013
  2. ASPIRIN [Concomitant]
  3. VITAMIN C (VITAMIN C) [Concomitant]
  4. VITAMIN E [Concomitant]
  5. MULTIVITAMINS, PLAIN (MULTIVITAMINS, PLAIN) [Concomitant]
  6. CALCIUM (CALCIUM) [Concomitant]
  7. GLUCOSAMINE (GLUCOSAMINE) [Concomitant]

REACTIONS (1)
  - MYOCARDIAL INFARCTION [None]
